FAERS Safety Report 13633964 (Version 1)
Quarter: 2017Q2

REPORT INFORMATION
  Report Type: Spontaneous
  Country: US (occurrence: US)
  Receive Date: 20170531
  Receipt Date: 20170531
  Transmission Date: 20170830
  Serious: No
  Sender: FDA-Public Use
  Company Number: US-ASTELLAS-1593008

PATIENT
  Sex: Female
  Weight: 70.8 kg

DRUGS (9)
  1. AMLODIPINE BESYLATE. [Concomitant]
     Active Substance: AMLODIPINE BESYLATE
  2. ACETAMINOPHEN. [Concomitant]
     Active Substance: ACETAMINOPHEN
  3. MELOXICAM. [Concomitant]
     Active Substance: MELOXICAM
  4. FLUCONAZOLE. [Concomitant]
     Active Substance: FLUCONAZOLE
  5. MOTRIN IB [Concomitant]
     Active Substance: IBUPROFEN
  6. TARCEVA [Suspect]
     Active Substance: ERLOTINIB HYDROCHLORIDE
     Route: 048
     Dates: start: 20150519
  7. SENNA LEAF [Concomitant]
     Active Substance: SENNA LEAF
  8. DECADRON [Concomitant]
     Active Substance: DEXAMETHASONE
     Dosage: DOSE LOWERED TO 2 MG TWICE
     Route: 065
  9. TARCEVA [Suspect]
     Active Substance: ERLOTINIB HYDROCHLORIDE
     Indication: LUNG NEOPLASM MALIGNANT
     Route: 048
     Dates: start: 20150521

REACTIONS (10)
  - Stomatitis [Recovered/Resolved]
  - Cough [Unknown]
  - Nail bed bleeding [Unknown]
  - Nail avulsion [Unknown]
  - Tongue ulceration [Unknown]
  - Dry skin [Unknown]
  - Skin fissures [Unknown]
  - Candida infection [Recovered/Resolved]
  - Dysgeusia [Unknown]
  - Dermatitis acneiform [Unknown]
